FAERS Safety Report 24681308 (Version 2)
Quarter: 2025Q3

REPORT INFORMATION
  Report Type: Report from Study
  Country: US (occurrence: US)
  Receive Date: 20241129
  Receipt Date: 20250803
  Transmission Date: 20251021
  Serious: Yes (Hospitalization)
  Sender: ALEXION PHARMACEUTICALS
  Company Number: US-ASTRAZENECA-202411USA020709US

PATIENT
  Sex: Female

DRUGS (2)
  1. OLAPARIB [Suspect]
     Active Substance: OLAPARIB
     Indication: Ovarian cancer
     Dosage: 300 MILLIGRAM, BID
     Dates: start: 20230804
  2. OLAPARIB [Suspect]
     Active Substance: OLAPARIB
     Dosage: 150 MILLIGRAM, BID
     Dates: start: 202310

REACTIONS (4)
  - Asthenia [Unknown]
  - Dyspnoea [Unknown]
  - Bone marrow disorder [Unknown]
  - Laboratory test abnormal [Recovered/Resolved]
